FAERS Safety Report 8230546-X (Version None)
Quarter: 2012Q1

REPORT INFORMATION
  Report Type: 
  Country: None (occurrence: None)
  Receive Date: 20120323
  Receipt Date: 20120314
  Transmission Date: 20120608
  Serious: Yes (Other)
  Sender: FDA-Public Use
  Company Number: US-SANOFI-AVENTIS-2012SA013973

PATIENT
  Age: 61 Year
  Sex: Female

DRUGS (6)
  1. OPTICLICK [Suspect]
     Dates: start: 20120201
  2. LANTUS [Suspect]
     Route: 058
     Dates: start: 20120201
  3. LANTUS [Suspect]
     Route: 058
     Dates: start: 19950101, end: 20120201
  4. ANALGESICS [Concomitant]
  5. ALL OTHER THERAPEUTIC PRODUCTS [Concomitant]
  6. OPTICLICK [Suspect]
     Dates: start: 19950101, end: 20120201

REACTIONS (6)
  - BACK DISORDER [None]
  - DRUG INEFFECTIVE [None]
  - DRUG DOSE OMISSION [None]
  - BLOOD GLUCOSE INCREASED [None]
  - DECREASED APPETITE [None]
  - THINKING ABNORMAL [None]
